FAERS Safety Report 15061921 (Version 1)
Quarter: 2018Q2

REPORT INFORMATION
  Report Type: Spontaneous
  Country: GR (occurrence: GR)
  Receive Date: 20180625
  Receipt Date: 20180625
  Transmission Date: 20180711
  Serious: Yes (Life-Threatening)
  Sender: FDA-Public Use
  Company Number: GR-PFIZER INC-2018251562

PATIENT
  Age: 62 Year
  Sex: Male
  Weight: 105 kg

DRUGS (2)
  1. ATORVASTATIN CALCIUM. [Suspect]
     Active Substance: ATORVASTATIN CALCIUM
     Indication: DYSLIPIDAEMIA
     Dosage: 1 DF(20 MG), 1X/DAY
     Route: 048
     Dates: start: 2014, end: 2016
  2. PRAVASTATIN. [Suspect]
     Active Substance: PRAVASTATIN
     Indication: DYSLIPIDAEMIA
     Dosage: 1 DF (40 MG), 1X/DAY
     Route: 048
     Dates: start: 2014, end: 2016

REACTIONS (3)
  - Blood creatine phosphokinase increased [Unknown]
  - Myopathy [Unknown]
  - Myalgia [Unknown]

NARRATIVE: CASE EVENT DATE: 2014
